FAERS Safety Report 24164650 (Version 1)
Quarter: 2024Q3

REPORT INFORMATION
  Report Type: Spontaneous
  Country: US (occurrence: US)
  Receive Date: 20240801
  Receipt Date: 20240801
  Transmission Date: 20241016
  Serious: No
  Sender: AIMMUNE
  Company Number: US-AIMMUNE THERAPEUTICS, INC.-2024AIMT00776

PATIENT

DRUGS (2)
  1. VOWST [Suspect]
     Active Substance: DONOR HUMAN STOOL SPORES (ETHANOL TREATED)
     Indication: Clostridium difficile colitis
     Dosage: 4 CAPSULES, 1X/DAY
     Route: 048
     Dates: start: 20240506
  2. VOWST [Suspect]
     Active Substance: DONOR HUMAN STOOL SPORES (ETHANOL TREATED)
     Dosage: 1 CAPSULE, ONCE, LAST DOSE PRIOR TO EVENT
     Route: 048
     Dates: start: 20240506, end: 20240506

REACTIONS (2)
  - Underdose [Unknown]
  - Product knowledge deficit [Unknown]

NARRATIVE: CASE EVENT DATE: 20240506
